FAERS Safety Report 9928114 (Version 1)
Quarter: 2014Q1

REPORT INFORMATION
  Report Type: Spontaneous
  Country: US (occurrence: None)
  Receive Date: 20140226
  Receipt Date: 20140226
  Transmission Date: 20141002
  Serious: No
  Sender: FDA-Public Use
  Company Number: None

PATIENT
  Age: 24 Year
  Sex: Male
  Weight: 74 kg

DRUGS (2)
  1. AMPHETAMINE SALTS [Suspect]
     Indication: ATTENTION DEFICIT/HYPERACTIVITY DISORDER
     Route: 048
     Dates: start: 20131120, end: 20140225
  2. AMPHETAMINE SALTS [Suspect]
     Route: 048
     Dates: start: 20131120, end: 20140225

REACTIONS (4)
  - Irritability [None]
  - Mental disorder [None]
  - Fatigue [None]
  - Anorgasmia [None]
